FAERS Safety Report 4598197-6 (Version None)
Quarter: 2005Q1

REPORT INFORMATION
  Report Type: 
  Country: None (occurrence: None)
  Receive Date: 20050304
  Receipt Date: 20041229
  Transmission Date: 20050727
  Serious: Yes (Other)
  Sender: FDA-Public Use
  Company Number: JP-BRISTOL-MYERS SQUIBB COMPANY-12808382

PATIENT
  Age: 33 Year
  Sex: Male

DRUGS (10)
  1. BLEO [Suspect]
     Indication: TESTIS CANCER
     Dosage: 1ST DOSE: 04NOV04 TOTAL DOSE: 60 MG
     Route: 042
     Dates: start: 20041111, end: 20041111
  2. RANDA [Concomitant]
     Indication: TESTIS CANCER
     Route: 042
     Dates: start: 20041104, end: 20041108
  3. LASTET [Concomitant]
     Indication: TESTIS CANCER
     Route: 042
     Dates: start: 20041104, end: 20041108
  4. MEYLON [Concomitant]
     Route: 042
     Dates: start: 20041104, end: 20041108
  5. DECADRON [Concomitant]
     Route: 042
     Dates: start: 20041104, end: 20041108
  6. PRIMPERAN TAB [Concomitant]
     Route: 042
     Dates: start: 20041104, end: 20041110
  7. LASIX [Concomitant]
     Route: 042
     Dates: start: 20041104, end: 20041108
  8. NASEA [Concomitant]
     Route: 042
     Dates: start: 20041104, end: 20041109
  9. FOSMICIN [Concomitant]
     Route: 042
     Dates: start: 20041104, end: 20041108
  10. MAGNOSOL [Concomitant]
     Route: 042
     Dates: start: 20041109, end: 20041110

REACTIONS (5)
  - HYPOAESTHESIA [None]
  - MUSCULOSKELETAL STIFFNESS [None]
  - PYREXIA [None]
  - TACHYPNOEA [None]
  - WHITE BLOOD CELL COUNT DECREASED [None]
